FAERS Safety Report 5142690-4 (Version None)
Quarter: 2006Q4

REPORT INFORMATION
  Report Type: 
  Country: None (occurrence: None)
  Receive Date: 20061102
  Receipt Date: 20061024
  Transmission Date: 20070319
  Serious: Yes (Hospitalization)
  Sender: FDA-Public Use
  Company Number: US-ABBOTT-06P-163-0348068-00

PATIENT
  Sex: Male

DRUGS (9)
  1. TRICOR [Suspect]
     Indication: DRUG USE FOR UNKNOWN INDICATION
     Route: 042
  2. CARVEDILOL [Suspect]
     Indication: VENTRICULAR DYSFUNCTION
     Route: 042
     Dates: start: 20061010
  3. CLOPIDOGREL [Suspect]
     Indication: DRUG USE FOR UNKNOWN INDICATION
     Route: 042
  4. FAMOTIDINE [Suspect]
     Indication: DRUG USE FOR UNKNOWN INDICATION
     Route: 042
  5. AMLODIPINE BESYLATE [Concomitant]
     Indication: DRUG USE FOR UNKNOWN INDICATION
  6. ASPIRIN [Concomitant]
     Indication: DRUG USE FOR UNKNOWN INDICATION
  7. GLYCERYL TRINITRATE [Concomitant]
     Indication: DRUG USE FOR UNKNOWN INDICATION
  8. LEVOSALBUTAMOL [Concomitant]
     Indication: DRUG USE FOR UNKNOWN INDICATION
  9. IPRATROPIUM BROMIDE [Concomitant]
     Indication: DRUG USE FOR UNKNOWN INDICATION

REACTIONS (1)
  - DRUG ADMINISTRATION ERROR [None]
